FAERS Safety Report 6736185-1 (Version None)
Quarter: 2010Q2

REPORT INFORMATION
  Report Type: 
  Country: None (occurrence: None)
  Receive Date: 20100521
  Receipt Date: 20100517
  Transmission Date: 20101027
  Serious: Yes (Hospitalization, Other)
  Sender: FDA-Public Use
  Company Number: US-SANOFI-AVENTIS-2010SA014992

PATIENT
  Age: 62 Year
  Sex: Female
  Weight: 98.6 kg

DRUGS (27)
  1. PLAVIX [Suspect]
     Indication: STENT PLACEMENT
     Route: 048
     Dates: start: 20060501, end: 20100210
  2. PLAVIX [Suspect]
     Route: 048
     Dates: start: 20100201, end: 20100201
  3. TAXOL [Suspect]
     Dosage: EVERY 3 WEEKS FOR 6 CYCLES
     Route: 065
     Dates: start: 20090821
  4. AVASTIN [Suspect]
     Dosage: EVERY 3 WEEKS FOR 6 CYCLES
     Route: 065
     Dates: start: 20090821
  5. CARBOPLATIN [Suspect]
     Dosage: EVERY 3 WEEKS FOR 6 CYCLES
     Route: 065
     Dates: start: 20090821
  6. AREDIA [Suspect]
     Dosage: EVERY 3 WEEKS FOR 6 CYCLES
     Route: 065
     Dates: start: 20090821
  7. ALIMTA [Suspect]
     Route: 065
     Dates: start: 20100202
  8. THEO-DUR [Concomitant]
  9. SYNTHROID [Concomitant]
     Route: 048
  10. POTASSIUM CHLORIDE [Concomitant]
  11. GLUCOPHAGE [Concomitant]
     Dosage: 3 TABLETS AFTER DINNER
     Dates: start: 20020101
  12. IPRATROPIUM BROMIDE/SALBUTAMOL SULFATE [Concomitant]
     Dosage: DOSE:2 PUFF(S)
  13. HYDROCHLOROTHIAZIDE [Concomitant]
     Dates: start: 20020101
  14. ANTIHYPERTENSIVES [Concomitant]
     Route: 048
     Dates: start: 20080714
  15. COZAAR [Concomitant]
     Dosage: 100 TO 50 MG DAILY
     Dates: end: 20100210
  16. ZANTAC [Concomitant]
     Dosage: 150 MG TWICE A DAY FOR A COUPLE OF YEARS, THEN 150 MG IN THE EVENING LAST FEW MONTHS
  17. COMPAZINE [Concomitant]
     Dosage: DAILY AS NEEDED AFTER CHEMOTHERAPY
  18. FOLIC ACID [Concomitant]
     Route: 048
  19. VITAMIN D3 [Concomitant]
     Route: 048
  20. VITAMIN B COMPLEX CAP [Concomitant]
     Route: 048
  21. MULTI-VITAMINS [Concomitant]
     Dosage: OCCASIONAL USE
  22. MAGNESIUM [Concomitant]
     Dosage: OCCASIONAL USE
  23. OXYGEN [Concomitant]
     Dosage: 2 LITERS/MINUTE NASAL CANNULA THEN 1.5 LITERS FOR A COUPLE OF YEARS
  24. ECOTRIN [Concomitant]
     Route: 048
     Dates: end: 20080101
  25. DIPHENHYDRAMINE HYDROCHLORIDE [Concomitant]
     Indication: PREMEDICATION
  26. CORTICOSTEROIDS [Concomitant]
     Indication: PREMEDICATION
  27. ANTIEMETICS AND ANTINAUSEANTS [Concomitant]
     Indication: PREMEDICATION

REACTIONS (6)
  - COMPRESSION FRACTURE [None]
  - DEHYDRATION [None]
  - EPISTAXIS [None]
  - FALL [None]
  - HYPOTENSION [None]
  - NASAL SEPTUM DISORDER [None]
